FAERS Safety Report 18090737 (Version 1)
Quarter: 2020Q3

REPORT INFORMATION
  Report Type: Spontaneous
  Country: US (occurrence: US)
  Receive Date: 20200729
  Receipt Date: 20200729
  Transmission Date: 20201103
  Serious: Yes (Other)
  Sender: FDA-Public Use
  Company Number: None

PATIENT
  Age: 51 Year
  Sex: Female

DRUGS (2)
  1. EMGALITY [Suspect]
     Active Substance: GALCANEZUMAB-GNLM
     Indication: MIGRAINE
     Dosage: ?          OTHER ROUTE:INJECTION?
     Dates: start: 201910, end: 202003
  2. EMGALITY [Suspect]
     Active Substance: GALCANEZUMAB-GNLM
     Indication: TRIGEMINAL NEURALGIA
     Dosage: ?          OTHER ROUTE:INJECTION?
     Dates: start: 201910, end: 202003

REACTIONS (2)
  - Alopecia [None]
  - Skin swelling [None]

NARRATIVE: CASE EVENT DATE: 20200310
